FAERS Safety Report 17789707 (Version 3)
Quarter: 2020Q3

REPORT INFORMATION
  Report Type: Report from Study
  Country: None (occurrence: US)
  Receive Date: 20200515
  Receipt Date: 20200814
  Transmission Date: 20201102
  Serious: No
  Sender: FDA-Public Use
  Company Number: US-BIOVITRUM-2020US0742

PATIENT
  Age: 32 Year
  Sex: Male

DRUGS (5)
  1. KINERET [Suspect]
     Active Substance: ANAKINRA
     Route: 058
     Dates: start: 20200126
  2. KINERET [Suspect]
     Active Substance: ANAKINRA
     Route: 058
     Dates: start: 20200121
  3. KINERET [Suspect]
     Active Substance: ANAKINRA
  4. PREDNISONE. [Concomitant]
     Active Substance: PREDNISONE
     Indication: PRODUCT USED FOR UNKNOWN INDICATION
  5. KINERET [Suspect]
     Active Substance: ANAKINRA
     Indication: STILL^S DISEASE
     Route: 058
     Dates: start: 20200120

REACTIONS (9)
  - Arthralgia [Unknown]
  - Product dose omission issue [Unknown]
  - Discomfort [Unknown]
  - Fatigue [Unknown]
  - Irritability [Unknown]
  - Injection site rash [Unknown]
  - Epistaxis [Recovering/Resolving]
  - Off label use [Not Recovered/Not Resolved]
  - Dry skin [Unknown]

NARRATIVE: CASE EVENT DATE: 20200120
